FAERS Safety Report 6023810-6 (Version None)
Quarter: 2008Q4

REPORT INFORMATION
  Report Type: 
  Country: None (occurrence: None)
  Receive Date: 20081230
  Receipt Date: 20081218
  Transmission Date: 20090506
  Serious: Yes (Hospitalization)
  Sender: FDA-Public Use
  Company Number: NL-PFIZER INC-2008100961

PATIENT

DRUGS (12)
  1. ZAVEDOS [Suspect]
     Indication: ACUTE MYELOID LEUKAEMIA
     Dosage: 21 MG, ONCE
     Route: 042
     Dates: start: 20081013, end: 20081013
  2. CYTARABINE [Suspect]
     Indication: ACUTE MYELOID LEUKAEMIA
     Dosage: 350 MG, ONCE
     Route: 042
     Dates: start: 20081013, end: 20081013
  3. TRAMADOL [Concomitant]
     Dosage: 50 MG AS NEEDED
     Route: 048
  4. ORGAMETRIL [Concomitant]
     Dosage: 10 MG 1X/DAY
     Route: 048
  5. CIPROFLOXACIN [Concomitant]
     Dosage: 500 MG, 2X/DAY
     Route: 048
  6. FLUCONAZOLE [Concomitant]
     Dosage: 400 MG, 1X/DAY
     Route: 048
  7. METOCLOPRAMIDE [Concomitant]
     Dosage: 10 MG, AS NEEDED
     Route: 048
  8. LORAZEPAM [Concomitant]
     Dosage: 1 MG, 3X/DAY
     Route: 048
  9. OXAZEPAM [Concomitant]
     Dosage: 10 MG, AS NEEDED
     Route: 048
  10. ALLOPURINOL [Concomitant]
     Dosage: 300 MG, 1X/DAY
     Route: 048
  11. TIENAM [Concomitant]
     Dosage: 500 MG, 4X/DAY
     Route: 042
  12. KONAKION [Concomitant]
     Dosage: 10 MG, TWICE WEEKLY
     Route: 048

REACTIONS (1)
  - RHABDOMYOLYSIS [None]
